FAERS Safety Report 23883377 (Version 8)
Quarter: 2024Q4

REPORT INFORMATION
  Report Type: Spontaneous
  Country: DE (occurrence: DE)
  Receive Date: 20240522
  Receipt Date: 20241120
  Transmission Date: 20250114
  Serious: Yes (Hospitalization)
  Sender: NOVARTIS
  Company Number: DE-SANDOZ-SDZ2024DE048074

PATIENT
  Sex: Female

DRUGS (3)
  1. TERBINAFINE [Suspect]
     Active Substance: TERBINAFINE\TERBINAFINE HYDROCHLORIDE
     Indication: Product used for unknown indication
     Dosage: 1 DOSAGE FORM
     Route: 065
     Dates: start: 20240306, end: 20240319
  2. TERBINAFINE HYDROCHLORIDE [Suspect]
     Active Substance: TERBINAFINE HYDROCHLORIDE
     Indication: Product used for unknown indication
     Dosage: UNK
     Route: 065
  3. CETIRIZINE [Suspect]
     Active Substance: CETIRIZINE HYDROCHLORIDE
     Indication: Swelling
     Dosage: UNK
     Route: 065

REACTIONS (18)
  - Hypoaesthesia oral [Recovering/Resolving]
  - Swelling face [Recovering/Resolving]
  - Swelling face [Recovering/Resolving]
  - Swelling face [Recovering/Resolving]
  - Mouth swelling [Recovering/Resolving]
  - Mouth swelling [Recovering/Resolving]
  - Mouth swelling [Recovering/Resolving]
  - Lip swelling [Recovering/Resolving]
  - Lip swelling [Recovering/Resolving]
  - Lymphadenopathy [Unknown]
  - Gingival pain [Unknown]
  - Stomatitis [Recovering/Resolving]
  - Ageusia [Unknown]
  - Drug ineffective [Unknown]
  - Lip swelling [Recovering/Resolving]
  - Lip swelling [Recovering/Resolving]
  - Swelling face [Recovering/Resolving]
  - Swelling face [Recovering/Resolving]

NARRATIVE: CASE EVENT DATE: 20240311
